FAERS Safety Report 7624209-9 (Version None)
Quarter: 2011Q3

REPORT INFORMATION
  Report Type: 
  Country: None (occurrence: None)
  Receive Date: 20110720
  Receipt Date: 20110720
  Transmission Date: 20111222
  Serious: Yes (Life-Threatening)
  Sender: FDA-Public Use
  Company Number: None

PATIENT
  Age: 49 Year
  Sex: Male
  Weight: 79.378 kg

DRUGS (12)
  1. NIACIN [Interacting]
  2. ZOLPIDEM TARTRATE [Interacting]
     Indication: MAJOR DEPRESSION
  3. SEROQUEL XR [Suspect]
     Indication: MAJOR DEPRESSION
     Dosage: 150MG
     Route: 048
     Dates: start: 20091029, end: 20091130
  4. VITAMIN D [Interacting]
  5. DIAZEPAM [Interacting]
  6. CYCLOBENZAPRINE [Interacting]
  7. AMOXICILLIN [Interacting]
  8. LEVOTHYROXINE SODIUM [Interacting]
  9. TESTOSTERONE CYPIONATE [Interacting]
  10. PHENOBARBITAL TAB [Interacting]
  11. ASPIRIN [Interacting]
  12. HYDROXYZINE HCL [Interacting]

REACTIONS (3)
  - HAEMORRHAGE [None]
  - INTENTIONAL SELF-INJURY [None]
  - DIZZINESS [None]
